FAERS Safety Report 18677184 (Version 2)
Quarter: 2021Q2

REPORT INFORMATION
  Report Type: Report from Study
  Country: US (occurrence: US)
  Receive Date: 20201229
  Receipt Date: 20210414
  Transmission Date: 20210717
  Serious: Yes (Hospitalization)
  Sender: FDA-Public Use
  Company Number: US-PFIZER INC-2020514160

PATIENT
  Age: 14 Year
  Sex: Female
  Weight: 46.4 kg

DRUGS (5)
  1. CAMPTOSAR [Suspect]
     Active Substance: IRINOTECAN HYDROCHLORIDE
     Indication: EMBRYONAL RHABDOMYOSARCOMA
     Dosage: UNK, CYCLIC
     Dates: end: 20200321
  2. TEMSIROLIMUS. [Suspect]
     Active Substance: TEMSIROLIMUS
     Indication: EMBRYONAL RHABDOMYOSARCOMA
     Dosage: UNK UNK, CYCLIC
     Dates: end: 20200605
  3. CYCLOPHOSPHAMIDE. [Suspect]
     Active Substance: CYCLOPHOSPHAMIDE
     Indication: EMBRYONAL RHABDOMYOSARCOMA
     Dosage: UNK, CYCLIC
     Dates: end: 20201123
  4. VINCRISTINE SULFATE. [Suspect]
     Active Substance: VINCRISTINE SULFATE
     Indication: EMBRYONAL RHABDOMYOSARCOMA
     Dosage: UNK UNK, CYCLIC
     Dates: end: 20200521
  5. DACTINOMYCIN [Suspect]
     Active Substance: DACTINOMYCIN
     Indication: EMBRYONAL RHABDOMYOSARCOMA
     Dosage: UNK, CYCLIC
     Dates: end: 20200521

REACTIONS (1)
  - Middle ear inflammation [Not Recovered/Not Resolved]

NARRATIVE: CASE EVENT DATE: 20201215
